FAERS Safety Report 9334368 (Version 1)
Quarter: 2013Q2

REPORT INFORMATION
  Report Type: Spontaneous
  Country: GB (occurrence: None)
  Receive Date: 20130604
  Receipt Date: 20130604
  Transmission Date: 20140414
  Serious: Yes (Hospitalization)
  Sender: FDA-Public Use
  Company Number: FK201301789

PATIENT
  Age: 66 Year
  Sex: Female
  Weight: 53 kg

DRUGS (11)
  1. OXALIPLATIN (OXALIPLATIN) [Suspect]
     Indication: COLORECTAL CANCER
     Route: 042
     Dates: start: 20121101, end: 20130109
  2. CALCIUM LEVOFOLINATE [Suspect]
     Route: 042
     Dates: start: 20121101, end: 20130220
  3. TIVOZANIB [Suspect]
     Route: 048
     Dates: start: 20121101, end: 20121223
  4. FLUOROURACIL (FLUOROURACIL) [Suspect]
     Route: 040
     Dates: start: 20121101, end: 20130220
  5. SIMVASTATIN [Concomitant]
  6. GABAPENTIN [Concomitant]
  7. OMEPRAZOLE [Concomitant]
  8. SALBUTAMOL [Concomitant]
  9. SERETIDE [Concomitant]
  10. THEOPHYLLIN [Concomitant]
  11. TIOTROPIUM [Concomitant]

REACTIONS (6)
  - Febrile neutropenia [None]
  - Neutropenic sepsis [None]
  - Malaise [None]
  - Blood sodium decreased [None]
  - Neuropathy peripheral [None]
  - Lower respiratory tract infection [None]
